FAERS Safety Report 9404950 (Version 1)
Quarter: 2013Q3

REPORT INFORMATION
  Report Type: Spontaneous
  Country: US (occurrence: US)
  Receive Date: 20130717
  Receipt Date: 20130717
  Transmission Date: 20140515
  Serious: No
  Sender: FDA-Public Use
  Company Number: US-TEVA-418822USA

PATIENT
  Age: 36 Year
  Sex: Female
  Weight: 49.94 kg

DRUGS (1)
  1. PARAGARD 380A [Suspect]
     Indication: CONTRACEPTION
     Route: 015
     Dates: start: 20130426

REACTIONS (1)
  - Abdominal distension [Not Recovered/Not Resolved]
